FAERS Safety Report 8478866-8 (Version None)
Quarter: 2012Q2

REPORT INFORMATION
  Report Type: 
  Country: None (occurrence: None)
  Receive Date: 20120629
  Receipt Date: 20120619
  Transmission Date: 20120825
  Serious: Yes (Hospitalization, Other)
  Sender: FDA-Public Use
  Company Number: SE-PFIZER INC-2012155881

PATIENT
  Age: 59 Year
  Sex: Female

DRUGS (6)
  1. IBUPROFEN [Suspect]
     Indication: PAIN IN EXTREMITY
     Route: 065
  2. FOLIC ACID [Concomitant]
     Dosage: 5MG, UNK
     Route: 065
  3. OMEPRAZOLE [Concomitant]
     Route: 065
  4. ENALAPRIL MALEATE [Suspect]
     Indication: ESSENTIAL HYPERTENSION
     Route: 065
  5. METFORMIN HCL [Suspect]
     Indication: DIABETES MELLITUS
     Dosage: UNK
     Route: 065
     Dates: end: 20120615
  6. VITAMIN B-12 [Concomitant]
     Dosage: 1 MG, UNK
     Route: 065

REACTIONS (1)
  - RENAL FAILURE ACUTE [None]
